FAERS Safety Report 8397849-X (Version None)
Quarter: 2012Q2

REPORT INFORMATION
  Report Type: 
  Country: None (occurrence: None)
  Receive Date: 20120531
  Receipt Date: 20120523
  Transmission Date: 20120825
  Serious: Yes (Other)
  Sender: FDA-Public Use
  Company Number: PHHY2012NZ031199

PATIENT
  Sex: Male

DRUGS (5)
  1. ARIPIPRAZOLE [Concomitant]
     Dosage: 15 MG, MANE
     Route: 048
  2. CLOZARIL [Suspect]
     Indication: SCHIZOPHRENIA
     Route: 048
     Dates: start: 20120215, end: 20120301
  3. LORAZEPAM [Concomitant]
     Route: 048
  4. CITALOPRAM [Concomitant]
     Dosage: 40 MG, MANE
     Route: 048
  5. RISPERIDONE [Concomitant]
     Dosage: 5 MG, NOCT
     Route: 048

REACTIONS (14)
  - BICUSPID AORTIC VALVE [None]
  - NEUTROPHIL COUNT INCREASED [None]
  - DIZZINESS [None]
  - MITRAL VALVE INCOMPETENCE [None]
  - C-REACTIVE PROTEIN INCREASED [None]
  - MALAISE [None]
  - TACHYCARDIA [None]
  - FATIGUE [None]
  - ELECTROCARDIOGRAM ST SEGMENT DEPRESSION [None]
  - MYOCARDITIS [None]
  - TROPONIN I INCREASED [None]
  - CHEST PAIN [None]
  - AORTIC VALVE INCOMPETENCE [None]
  - TACHYARRHYTHMIA [None]
